FAERS Safety Report 11096134 (Version 1)
Quarter: 2015Q2

REPORT INFORMATION
  Report Type: Spontaneous
  Country: US (occurrence: None)
  Receive Date: 20150505
  Receipt Date: 20150505
  Transmission Date: 20150821
  Serious: Yes (Other)
  Sender: FDA-Public Use
  Company Number: 2015040061

PATIENT
  Sex: Male
  Weight: 104.33 kg

DRUGS (2)
  1. GLIMEPIRIDE (GLIMEPIRIDE) [Concomitant]
     Active Substance: GLIMEPIRIDE
  2. MUSE [Suspect]
     Active Substance: ALPROSTADIL
     Indication: ERECTILE DYSFUNCTION
     Dosage: AS REQUIRED, URETHRAL
     Route: 066
     Dates: start: 2007

REACTIONS (2)
  - Wrong technique in drug usage process [None]
  - Prostate cancer [None]
